FAERS Safety Report 6346614-3 (Version None)
Quarter: 2009Q3

REPORT INFORMATION
  Report Type: 
  Country: None (occurrence: None)
  Receive Date: 20090827
  Receipt Date: 20090811
  Transmission Date: 20100115
  Serious: Yes (Hospitalization)
  Sender: FDA-Public Use
  Company Number: WAES  0908CHN00020

PATIENT
  Age: 68 Year
  Sex: Female

DRUGS (7)
  1. TAB LAROPIPRANT (+) NIACIN [Suspect]
     Indication: HIGH DENSITY LIPOPROTEIN DECREASED
     Dosage: 20MG-1GM DAILY PO
     Route: 048
     Dates: start: 20090805, end: 20090807
  2. VYTORIN [Suspect]
     Indication: HYPERCHOLESTEROLAEMIA
     Dosage: 10-40 MG DAILY PO
     Route: 048
     Dates: start: 20090706, end: 20090807
  3. ASPIRIN [Concomitant]
  4. BENAZEPRIL HYDROCHLORIDE [Concomitant]
  5. CLOPIDOGREL BISULFATE [Concomitant]
  6. ISOSORBIDE MONONITRATE [Concomitant]
  7. METOPROLOL TARTRATE [Concomitant]

REACTIONS (4)
  - DRUG ERUPTION [None]
  - ECZEMA [None]
  - RASH MACULO-PAPULAR [None]
  - RASH PRURITIC [None]
